FAERS Safety Report 25850292 (Version 1)
Quarter: 2025Q3

REPORT INFORMATION
  Report Type: Spontaneous
  Country: JP (occurrence: JP)
  Receive Date: 20250926
  Receipt Date: 20250926
  Transmission Date: 20251021
  Serious: Yes (Death, Other)
  Sender: MERCK SHARP & DOHME LLC
  Company Number: JP-009507513-2332942

PATIENT
  Age: 45 Year
  Sex: Female

DRUGS (2)
  1. KEYTRUDA [Suspect]
     Active Substance: PEMBROLIZUMAB
     Indication: Recurrent cancer
     Route: 065
  2. LENVATINIB [Suspect]
     Active Substance: LENVATINIB
     Indication: Microsatellite instability cancer
     Route: 065

REACTIONS (3)
  - Malignant neoplasm progression [Fatal]
  - Immune-mediated hypothyroidism [Unknown]
  - Therapy partial responder [Unknown]
